FAERS Safety Report 20691523 (Version 10)
Quarter: 2022Q4

REPORT INFORMATION
  Report Type: Report from Study
  Country: CN (occurrence: None)
  Receive Date: 20220408
  Receipt Date: 20221202
  Transmission Date: 20230112
  Serious: Yes (Hospitalization)
  Sender: FDA-Public Use
  Company Number: CN-ROCHE-3065031

PATIENT
  Age: 45 Year
  Sex: Female
  Weight: 58.4 kg

DRUGS (6)
  1. PLACEBO [Suspect]
     Active Substance: UNSPECIFIED INGREDIENT
     Indication: Rheumatoid arthritis
     Dosage: DOSE LAST STUDY DRUG ADMIN PRIOR AE ,DOSE LAST STUDY DRUG ADMIN PRIOR SAE ON 03/DEC/2021. END DATE
     Route: 048
     Dates: start: 20210611
  2. TOCILIZUMAB [Suspect]
     Active Substance: TOCILIZUMAB
     Indication: Rheumatoid arthritis
     Dosage: DOSE LAST STUDY DRUG ADMIN PRIOR AE DOSE LAST STUDY DRUG ADMIN PRIOR SAE ON 24/NOV/2021
     Route: 058
     Dates: start: 20210607
  3. TOCILIZUMAB [Suspect]
     Active Substance: TOCILIZUMAB
     Indication: Rheumatoid arthritis
     Dosage: DOSE LAST STUDY DRUG ADMIN PRIOR AE AND PRIOR SAE IS 162 MG ON 27/MAR/2022
     Route: 058
     Dates: start: 20211207
  4. METHOTREXATE [Suspect]
     Active Substance: METHOTREXATE
     Indication: Rheumatoid arthritis
     Dosage: DOSE LAST STUDY DRUG ADMIN PRIOR AE AND PRIOR SAE IS 10 MG ON 25/MAR/2022.END DATE OF MOST RECENT DO
     Route: 048
     Dates: start: 20211210
  5. MELOXICAM [Concomitant]
     Active Substance: MELOXICAM
     Indication: Rheumatoid arthritis
     Route: 048
     Dates: start: 20210321
  6. FOLIC ACID [Concomitant]
     Active Substance: FOLIC ACID
     Dosage: ONGOING
     Dates: start: 2020

REACTIONS (1)
  - Haematoma [Recovered/Resolved]

NARRATIVE: CASE EVENT DATE: 20220330
